FAERS Safety Report 4636431-4 (Version None)
Quarter: 2005Q2

REPORT INFORMATION
  Report Type: 
  Country: None (occurrence: None)
  Receive Date: 20050415
  Receipt Date: 20050406
  Transmission Date: 20051028
  Serious: Yes (Hospitalization)
  Sender: FDA-Public Use
  Company Number: US-ROCHE-400932

PATIENT
  Age: 17 Month
  Sex: Male
  Weight: 12 kg

DRUGS (8)
  1. DACLIZUMAB [Suspect]
     Route: 065
     Dates: start: 20030308
  2. MYCOPHENOLATE MOFETIL [Suspect]
     Route: 065
  3. TACROLIMUS [Suspect]
     Route: 065
  4. PREDNISONE [Suspect]
     Route: 065
  5. ZANTAC [Concomitant]
  6. BACTRIM [Concomitant]
  7. REGLAN [Concomitant]
  8. VALCYTE [Concomitant]

REACTIONS (4)
  - ALPHA HAEMOLYTIC STREPTOCOCCAL INFECTION [None]
  - BACTERAEMIA [None]
  - CLOSTRIDIUM COLITIS [None]
  - GASTRIC OUTLET OBSTRUCTION [None]
